FAERS Safety Report 5371099-3 (Version None)
Quarter: 2007Q2

REPORT INFORMATION
  Report Type: 
  Country: None (occurrence: None)
  Receive Date: 20070615
  Receipt Date: 20070404
  Transmission Date: 20071010
  Serious: Yes (Other)
  Sender: FDA-Public Use
  Company Number: 200712366US

PATIENT
  Age: 60 Year
  Sex: Male

DRUGS (7)
  1. LANTUS [Suspect]
     Indication: DIABETES MELLITUS NON-INSULIN-DEPENDENT
     Dosage: 20 U HS
     Dates: start: 20070101, end: 20070201
  2. LANTUS [Suspect]
     Indication: DIABETES MELLITUS NON-INSULIN-DEPENDENT
     Dosage: 20 U HS
     Dates: start: 20070330
  3. LANTUS [Suspect]
     Indication: DIABETES MELLITUS NON-INSULIN-DEPENDENT
     Dosage: 18 U HS
     Dates: start: 20070402
  4. LISINOPRIL [Concomitant]
  5. PIOGLITAZONE [Concomitant]
  6. GLYBURIDE [Concomitant]
  7. XANAX [Concomitant]

REACTIONS (2)
  - BLOOD GLUCOSE INCREASED [None]
  - HYPOGLYCAEMIA [None]
